FAERS Safety Report 7876334-5 (Version None)
Quarter: 2011Q4

REPORT INFORMATION
  Report Type: 
  Country: None (occurrence: None)
  Receive Date: 20111031
  Receipt Date: 20111021
  Transmission Date: 20120403
  Serious: Yes (Hospitalization)
  Sender: FDA-Public Use
  Company Number: US-MERCK-1109USA03057

PATIENT
  Age: 67 Year
  Sex: Female

DRUGS (11)
  1. SINEMET [Suspect]
     Indication: PARKINSON'S DISEASE
     Dosage: 1 AND 1/2 TABLETS AND EVERY TWO AND A HALF HOURS
     Route: 048
     Dates: start: 20040101
  2. SYNTHROID [Concomitant]
     Route: 065
  3. TIGAN [Concomitant]
     Indication: NAUSEA
     Route: 048
  4. CALCIUM CARBONATE [Concomitant]
     Route: 065
  5. CYANOCOBALAMIN [Concomitant]
     Dosage: EVERY OTHER MONTH
     Route: 065
  6. ATIVAN [Concomitant]
     Route: 065
  7. VITAMIN D (UNSPECIFIED) [Concomitant]
     Route: 065
  8. AMANTADINE HYDROCHLORIDE [Concomitant]
     Route: 065
     Dates: start: 20110301
  9. ATIVAN [Concomitant]
     Route: 065
  10. AMANTADINE HYDROCHLORIDE [Concomitant]
     Route: 065
     Dates: start: 20110301
  11. MAGNESIUM (UNSPECIFIED) [Concomitant]
     Route: 065

REACTIONS (16)
  - FLUSHING [None]
  - MOVEMENT DISORDER [None]
  - FEELING ABNORMAL [None]
  - DEFAECATION URGENCY [None]
  - OVERDOSE [None]
  - MICTURITION URGENCY [None]
  - PARKINSON'S DISEASE [None]
  - CRYING [None]
  - GAIT DISTURBANCE [None]
  - DROOLING [None]
  - DYSPHAGIA [None]
  - SPEECH DISORDER [None]
  - SALIVARY HYPERSECRETION [None]
  - MALAISE [None]
  - PAIN IN EXTREMITY [None]
  - ERYTHEMA [None]
